FAERS Safety Report 24572507 (Version 2)
Quarter: 2024Q4

REPORT INFORMATION
  Report Type: Spontaneous
  Country: JP (occurrence: JP)
  Receive Date: 20241101
  Receipt Date: 20241227
  Transmission Date: 20250115
  Serious: Yes (Death, Other)
  Sender: MERCK
  Company Number: JP-MSD-2410JPN004559J

PATIENT
  Age: 59 Year
  Sex: Female

DRUGS (3)
  1. CANCIDAS [Suspect]
     Active Substance: CASPOFUNGIN ACETATE
     Dosage: UNK
     Route: 041
  2. MICAFUNGIN SODIUM [Concomitant]
     Active Substance: MICAFUNGIN SODIUM
     Dosage: 50 MILLIGRAM
     Route: 065
  3. MICAFUNGIN SODIUM [Concomitant]
     Active Substance: MICAFUNGIN SODIUM
     Dosage: 150 MILLIGRAM
     Route: 065

REACTIONS (3)
  - Engraftment syndrome [Fatal]
  - Haematological infection [Recovering/Resolving]
  - Fungal infection [Recovering/Resolving]
